FAERS Safety Report 19311075 (Version 8)
Quarter: 2023Q1

REPORT INFORMATION
  Report Type: Report from Study
  Country: JP (occurrence: JP)
  Receive Date: 20210526
  Receipt Date: 20230123
  Transmission Date: 20230417
  Serious: Yes (Death, Hospitalization, Other)
  Sender: FDA-Public Use
  Company Number: JP-ONO-2020JP016629

PATIENT
  Age: 63 Year
  Sex: Male
  Weight: 48 kg

DRUGS (16)
  1. ETELCALCETIDE [Suspect]
     Active Substance: ETELCALCETIDE
     Indication: Hyperparathyroidism secondary
     Dosage: 5 MG, Q56H
     Route: 010
     Dates: start: 20180423, end: 20180518
  2. ETELCALCETIDE [Suspect]
     Active Substance: ETELCALCETIDE
     Dosage: 2.5 MG, Q56H
     Route: 010
     Dates: start: 20180521, end: 20180720
  3. ETELCALCETIDE [Suspect]
     Active Substance: ETELCALCETIDE
     Dosage: 2.5 MG, Q84H
     Route: 010
     Dates: start: 20180723, end: 20191111
  4. ETELCALCETIDE [Suspect]
     Active Substance: ETELCALCETIDE
     Dosage: 2.5 MG, Q56H
     Route: 010
     Dates: start: 20191113, end: 20210929
  5. FULSTAN [Concomitant]
     Dosage: 0.15 MICROGRAM, QD
     Route: 065
     Dates: start: 20180110, end: 20180627
  6. FULSTAN [Concomitant]
     Dosage: 0.3 MICROGRAM, QD
     Route: 065
     Dates: start: 20180628, end: 20180814
  7. FULSTAN [Concomitant]
     Dosage: 0.15 MICROGRAM, QD
     Route: 065
     Dates: start: 20180815, end: 20181128
  8. ROCALTROL [Concomitant]
     Active Substance: CALCITRIOL
     Dosage: 0.5 MICROGRAM, Q56H
     Route: 065
     Dates: start: 20200311
  9. BIXALOMER [Concomitant]
     Active Substance: BIXALOMER
     Dosage: 3000 MG, EVERYDAY
     Route: 048
     Dates: end: 20200521
  10. CALCIUM POLYSTYRENE SULFONATE [Concomitant]
     Active Substance: CALCIUM POLYSTYRENE SULFONATE
     Dosage: 75 G, EVERYDAY
     Route: 048
  11. EPOETIN ALFA BS [Concomitant]
     Active Substance: ERYTHROPOIETIN
     Dosage: 9000 IU, QW
     Route: 065
     Dates: end: 20180708
  12. EPOETIN ALFA BS [Concomitant]
     Active Substance: ERYTHROPOIETIN
     Dosage: 6000 IU, QW
     Route: 065
     Dates: start: 20180710, end: 20200113
  13. EPOETIN ALFA BS [Concomitant]
     Active Substance: ERYTHROPOIETIN
     Dosage: 9000 IU, QW
     Route: 065
     Dates: start: 20200115
  14. Fesin [Concomitant]
     Dosage: 40 MILLIGRAM, QWK
     Route: 042
     Dates: start: 20191213, end: 20200214
  15. Fesin [Concomitant]
     Dosage: 40 MILLIGRAM, QWK
     Route: 042
     Dates: start: 20200228, end: 20200501
  16. CALCIUM CARBONATE [Concomitant]
     Active Substance: CALCIUM CARBONATE
     Dosage: 3000 MG, EVERYDAY
     Route: 048
     Dates: start: 20200522

REACTIONS (5)
  - Pancreatic carcinoma recurrent [Fatal]
  - Pancreatic carcinoma [Recovering/Resolving]
  - Hyperkalaemia [Recovered/Resolved]
  - Shunt stenosis [Recovered/Resolved]
  - Shunt stenosis [Recovered/Resolved]

NARRATIVE: CASE EVENT DATE: 20190806
